FAERS Safety Report 18095430 (Version 1)
Quarter: 2020Q3

REPORT INFORMATION
  Report Type: Spontaneous
  Country: CA (occurrence: CA)
  Receive Date: 20200730
  Receipt Date: 20200730
  Transmission Date: 20201103
  Serious: Yes (Hospitalization)
  Sender: FDA-Public Use
  Company Number: CA-FRESENIUS KABI-FK202007828

PATIENT
  Age: 44 Year
  Sex: Male

DRUGS (15)
  1. KETAMINE [Suspect]
     Active Substance: KETAMINE
     Indication: PAIN
     Dosage: BOLUS DOSE
     Route: 042
  2. MAGNESIUM SULFATE. [Concomitant]
     Active Substance: MAGNESIUM SULFATE
     Indication: ANALGESIC THERAPY
     Dosage: BOLUS
     Route: 065
  3. MAGNESIUM SULFATE. [Concomitant]
     Active Substance: MAGNESIUM SULFATE
     Dosage: AN INFUSION OF 15 MG/KG/HR; ON THE THIRD, FOURTH, AND FIFTH DAYS OF HIGH?DOSE INTRAVENOUS KETAMINE I
     Route: 065
  4. AMITRIPTYLINE [Suspect]
     Active Substance: AMITRIPTYLINE
     Indication: PAIN
     Route: 065
  5. ONDANSETRON [Concomitant]
     Active Substance: ONDANSETRON
     Indication: PROPHYLAXIS
     Dosage: DAILY BEFORE KETAMINE
     Route: 065
  6. MIDAZOLAM (MANUFACTURER UNKNOWN) [Suspect]
     Active Substance: MIDAZOLAM HYDROCHLORIDE
     Indication: PROPHYLAXIS
     Dosage: DAILY BEFORE KETAMINE
     Route: 042
  7. ZOPICLONE [Suspect]
     Active Substance: ZOPICLONE
     Indication: PAIN
     Route: 065
  8. DRONABINOL. [Suspect]
     Active Substance: DRONABINOL
     Indication: PAIN
     Dosage: DELTA?9?TETRAHYDROCANNABINOL (THC); BEFORE HIGH?DOSE INTRAVENOUS KETAMINE INFUSION PROGRAM
     Route: 065
  9. DEXAMETHASONE. [Concomitant]
     Active Substance: DEXAMETHASONE
     Indication: PROPHYLAXIS
     Dosage: DAILY BEFORE KETAMINE
     Route: 065
  10. DULOXETINE. [Suspect]
     Active Substance: DULOXETINE
     Indication: PAIN
     Route: 065
  11. DRONABINOL. [Suspect]
     Active Substance: DRONABINOL
     Dosage: DELTA?9?TETRAHYDROCANNABINOL (THC); TWO?THREE TIMES HIS USUAL DOSE ON THE EVENING OF THE LAST DAY OF
     Route: 065
  12. CANNABIDIOL [Suspect]
     Active Substance: CANNABIDIOL
     Indication: PAIN
     Dosage: VAPORIZED CANNABIDIOL (CBD) OIL
     Route: 065
  13. KETAMINE [Suspect]
     Active Substance: KETAMINE
     Dosage: 0.5 MG/KG/HR AND TITRATED TO A MAXIMUM OF 1.6 MG/KG/HR BY THE END OF THE SECOND DAY
     Route: 042
  14. TEMAZEPAM. [Suspect]
     Active Substance: TEMAZEPAM
     Indication: PAIN
     Route: 065
  15. LIDOCAINE. [Concomitant]
     Active Substance: LIDOCAINE
     Indication: ANALGESIC THERAPY
     Dosage: 5 MG/KG; ON THE THIRD, FOURTH, AND FIFTH DAYS OF HIGH?DOSE INTRAVENOUS KETAMINE INFUSION PROGRAM
     Route: 065

REACTIONS (1)
  - Behaviour disorder [Recovered/Resolved]
